FAERS Safety Report 8884431 (Version 2)
Quarter: 2013Q1

REPORT INFORMATION
  Report Type: Spontaneous
  Country: US (occurrence: US)
  Receive Date: 20121102
  Receipt Date: 20130108
  Transmission Date: 20140127
  Serious: Yes (Hospitalization)
  Sender: FDA-Public Use
  Company Number: PHEH2012US021052

PATIENT
  Age: 58 Year
  Sex: Female
  Weight: 67.12 kg

DRUGS (15)
  1. RECLAST [Suspect]
     Indication: OSTEOPOROSIS
     Dosage: 5 MG, YEARLY
     Route: 042
     Dates: start: 20121022
  2. ATIVAN [Concomitant]
  3. CEFEPIME [Concomitant]
  4. LOVENOX [Concomitant]
  5. MORPHINE [Concomitant]
  6. DAILY MULTIVITAMIN [Concomitant]
  7. TYLENOL [Concomitant]
  8. FOLIC ACID [Concomitant]
  9. IRON [Concomitant]
  10. VITAMIN B 12 [Concomitant]
  11. VIT D3 [Concomitant]
  12. AMBIEN [Concomitant]
  13. DEPLIN [Concomitant]
  14. LAMOTRIGIN [Concomitant]
  15. HYDROCODONE [Concomitant]

REACTIONS (20)
  - Acute myocardial infarction [Recovering/Resolving]
  - Ventricular extrasystoles [Recovering/Resolving]
  - Bradycardia [Recovering/Resolving]
  - Cardiac murmur [Recovering/Resolving]
  - Blood pressure decreased [Recovering/Resolving]
  - Systemic inflammatory response syndrome [Recovering/Resolving]
  - Lymphocyte count decreased [Recovering/Resolving]
  - Sinusitis [Recovering/Resolving]
  - Pyrexia [Recovering/Resolving]
  - Urine output decreased [Recovering/Resolving]
  - Spinal osteoarthritis [Recovering/Resolving]
  - Tenderness [Recovering/Resolving]
  - Arthropathy [Recovering/Resolving]
  - Hypocalcaemia [Recovered/Resolved with Sequelae]
  - Muscle spasms [Recovering/Resolving]
  - Dyspnoea [Recovering/Resolving]
  - Musculoskeletal pain [Recovering/Resolving]
  - Musculoskeletal stiffness [Recovering/Resolving]
  - Myalgia [Recovering/Resolving]
  - Rash [Unknown]
